FAERS Safety Report 7420482-0 (Version None)
Quarter: 2011Q2

REPORT INFORMATION
  Report Type: 
  Country: None (occurrence: None)
  Receive Date: 20110418
  Receipt Date: 20110408
  Transmission Date: 20111010
  Serious: Yes (Congenital Anomaly)
  Sender: FDA-Public Use
  Company Number: SE-JNJFOC-20110405899

PATIENT

DRUGS (1)
  1. TOPIRAMATE [Suspect]
     Indication: DRUG EXPOSURE DURING PREGNANCY
     Dosage: DURING 1ST TRIMESTER
     Route: 064

REACTIONS (1)
  - CONGENITAL CYSTIC KIDNEY DISEASE [None]
